FAERS Safety Report 4712479-6 (Version None)
Quarter: 2005Q3

REPORT INFORMATION
  Report Type: 
  Country: None (occurrence: None)
  Receive Date: 20050711
  Receipt Date: 20050620
  Transmission Date: 20060218
  Serious: Yes (Hospitalization)
  Sender: FDA-Public Use
  Company Number: ATO-05-0233

PATIENT
  Age: 70 Year
  Sex: Female
  Weight: 57.1532 kg

DRUGS (6)
  1. TRISENOX [Suspect]
     Indication: MULTIPLE MYELOMA
     Dosage: 14 MG IVI
     Route: 042
     Dates: start: 20050607, end: 20050615
  2. MELPHALAN [Suspect]
     Indication: MULTIPLE MYELOMA
     Dosage: 6 MG ORAL
     Route: 048
     Dates: start: 20050607, end: 20050607
  3. ASCORBIC ACID [Suspect]
     Indication: MULTIPLE MYELOMA
     Dates: start: 20050607, end: 20050615
  4. OXYTROL [Concomitant]
  5. SANTURA [Concomitant]
  6. FOLIC ACID [Concomitant]

REACTIONS (7)
  - ASTHENIA [None]
  - CARDIAC FAILURE CONGESTIVE [None]
  - DYSPNOEA [None]
  - PLATELET COUNT DECREASED [None]
  - PYREXIA [None]
  - RASH [None]
  - WHITE BLOOD CELL COUNT DECREASED [None]
